FAERS Safety Report 5730699-9 (Version None)
Quarter: 2008Q2

REPORT INFORMATION
  Report Type: 
  Country: None (occurrence: None)
  Receive Date: 20080505
  Receipt Date: 20080505
  Transmission Date: 20081010
  Serious: Yes (Other)
  Sender: FDA-Public Use
  Company Number: None

PATIENT
  Age: 62 Year
  Sex: Female
  Weight: 72.5755 kg

DRUGS (1)
  1. ADVIL [Suspect]
     Indication: MUSCLE STRAIN
     Dates: start: 20080503, end: 20080503

REACTIONS (2)
  - DYSPNOEA [None]
  - HEART RATE INCREASED [None]
